FAERS Safety Report 8452977-5 (Version None)
Quarter: 2012Q2

REPORT INFORMATION
  Report Type: 
  Country: None (occurrence: None)
  Receive Date: 20120620
  Receipt Date: 20120502
  Transmission Date: 20120825
  Serious: No
  Sender: FDA-Public Use
  Company Number: US-VERTEX PHARMACEUTICALS INC.-AE-2012-006403

PATIENT
  Sex: Female

DRUGS (7)
  1. PEGASYS [Concomitant]
     Indication: HEPATITIS C
     Route: 058
     Dates: start: 20120427
  2. RIBASPHERE [Concomitant]
     Indication: HEPATITIS C
     Route: 048
     Dates: start: 20120427
  3. AMBIEN [Concomitant]
     Route: 048
  4. INCIVEK [Suspect]
     Indication: HEPATITIS C
     Route: 048
     Dates: start: 20120427
  5. TYLENOL PM [Concomitant]
     Indication: PAIN
     Route: 048
  6. PHENERGAN [Concomitant]
     Indication: VOMITING
  7. PHENERGAN [Concomitant]
     Indication: NAUSEA
     Route: 048

REACTIONS (2)
  - VULVOVAGINAL PRURITUS [None]
  - VAGINAL DISCHARGE [None]
